FAERS Safety Report 24451381 (Version 1)
Quarter: 2024Q4

REPORT INFORMATION
  Report Type: Spontaneous
  Country: US (occurrence: US)
  Receive Date: 20241017
  Receipt Date: 20241017
  Transmission Date: 20250115
  Serious: No
  Sender: FENNEC PHARMACEUTICALS
  Company Number: US-FENNEC PHARMACEUTICALS, INC.-2024FEN00022

PATIENT
  Age: 27 Year
  Sex: Male

DRUGS (1)
  1. PEDMARK [Suspect]
     Active Substance: SODIUM THIOSULFATE
     Dosage: 48 G, 1X/DAY FOR 5 DAYS EVERY 3 WEEKS
     Route: 042
     Dates: start: 20240701, end: 20240705

REACTIONS (5)
  - Sneezing [Recovered/Resolved]
  - Anger [Recovered/Resolved]
  - Vomiting [Recovered/Resolved]
  - Nausea [Recovered/Resolved]
  - Off label use [Recovered/Resolved]

NARRATIVE: CASE EVENT DATE: 20240701
